FAERS Safety Report 14393459 (Version 1)
Quarter: 2018Q1

REPORT INFORMATION
  Report Type: Spontaneous
  Country: US (occurrence: US)
  Receive Date: 20180114
  Receipt Date: 20180114
  Transmission Date: 20180509
  Serious: Yes (Life-Threatening, Hospitalization, Disabling)
  Sender: FDA-Public Use
  Company Number: None

PATIENT
  Age: 68 Year
  Sex: Male
  Weight: 54 kg

DRUGS (15)
  1. OXICODINE [Concomitant]
  2. MORPHINE [Concomitant]
     Active Substance: MORPHINE
  3. CALCIUM [Concomitant]
     Active Substance: CALCIUM
  4. LUPRON [Concomitant]
     Active Substance: LEUPROLIDE ACETATE
  5. XGEVA [Concomitant]
     Active Substance: DENOSUMAB
  6. ATIVAN [Concomitant]
     Active Substance: LORAZEPAM
  7. KEYTRUDA [Suspect]
     Active Substance: PEMBROLIZUMAB
     Indication: PROSTATE CANCER METASTATIC
     Dates: start: 20170901, end: 20171208
  8. VITAMIN D [Concomitant]
     Active Substance: CHOLECALCIFEROL
  9. MAGNESIUM [Concomitant]
     Active Substance: MAGNESIUM
  10. AMIADERONE [Concomitant]
  11. GABAPENTIN. [Concomitant]
     Active Substance: GABAPENTIN
  12. TAMULOSIN [Concomitant]
     Active Substance: TAMSULOSIN
  13. NORCO [Concomitant]
     Active Substance: ACETAMINOPHEN\HYDROCODONE BITARTRATE
  14. VITAMIN B12 [Concomitant]
     Active Substance: CYANOCOBALAMIN
  15. OXYGEN. [Concomitant]
     Active Substance: OXYGEN

REACTIONS (4)
  - Atrial fibrillation [None]
  - Pneumonia [None]
  - Dyspnoea [None]
  - Colitis [None]

NARRATIVE: CASE EVENT DATE: 20171130
